FAERS Safety Report 25159446 (Version 1)
Quarter: 2025Q2

REPORT INFORMATION
  Report Type: Spontaneous
  Country: GB (occurrence: GB)
  Receive Date: 20250404
  Receipt Date: 20250404
  Transmission Date: 20250716
  Serious: Yes (Other)
  Sender: ACCORD
  Company Number: None

PATIENT
  Sex: Female

DRUGS (1)
  1. ESOMEPRAZOLE SODIUM [Suspect]
     Active Substance: ESOMEPRAZOLE SODIUM
     Indication: Product used for unknown indication

REACTIONS (11)
  - Breast pain [Unknown]
  - Nipple pain [Unknown]
  - Gastrooesophageal reflux disease [Unknown]
  - Pain [Unknown]
  - Alopecia [Unknown]
  - Abdominal distension [Unknown]
  - Oesophageal food impaction [Unknown]
  - Confusional state [Recovering/Resolving]
  - Tenderness [Recovering/Resolving]
  - Headache [Unknown]
  - Fatigue [Unknown]
